FAERS Safety Report 9388033 (Version 1)
Quarter: 2013Q3

REPORT INFORMATION
  Report Type: Spontaneous
  Country: FR (occurrence: None)
  Receive Date: 20130703
  Receipt Date: 20130703
  Transmission Date: 20140515
  Serious: Yes (Death)
  Sender: FDA-Public Use
  Company Number: 2013P1009988

PATIENT
  Age: 37 Year
  Sex: Male
  Weight: 62 kg

DRUGS (3)
  1. ROPINIROLE [Suspect]
  2. ALCOHOL [Suspect]
  3. PARACETAMOL [Concomitant]

REACTIONS (4)
  - Toxicity to various agents [None]
  - Alcohol use [None]
  - Pulmonary oedema [None]
  - Hepatic congestion [None]
